FAERS Safety Report 24026745 (Version 1)
Quarter: 2024Q2

REPORT INFORMATION
  Report Type: Report from Study
  Country: RO (occurrence: RO)
  Receive Date: 20240628
  Receipt Date: 20240628
  Transmission Date: 20240716
  Serious: No
  Sender: FDA-Public Use
  Company Number: RO-ROCHE-3575681

PATIENT
  Sex: Female

DRUGS (1)
  1. PHESGO [Suspect]
     Active Substance: HYALURONIDASE-ZZXF\PERTUZUMAB\TRASTUZUMAB
     Indication: Product used for unknown indication
     Dosage: 600MG/600MG SOL.INJ * 1FLAC 10ML
     Route: 065

REACTIONS (2)
  - Hypersensitivity [Unknown]
  - Accidental overdose [Unknown]
